FAERS Safety Report 17921105 (Version 2)
Quarter: 2020Q3

REPORT INFORMATION
  Report Type: Spontaneous
  Country: GB (occurrence: GB)
  Receive Date: 20200622
  Receipt Date: 20200701
  Transmission Date: 20201103
  Serious: Yes (Death, Hospitalization)
  Sender: FDA-Public Use
  Company Number: GB-ROCHE-2621945

PATIENT
  Age: 56 Year
  Sex: Female
  Weight: 66.9 kg

DRUGS (11)
  1. PACLITAXEL. [Concomitant]
     Active Substance: PACLITAXEL
     Route: 065
     Dates: start: 20200220
  2. OMEPRAZOLE. [Concomitant]
     Active Substance: OMEPRAZOLE
     Route: 048
  3. CHLORPHENAMINE [Concomitant]
     Active Substance: CHLORPHENIRAMINE MALEATE
  4. METOCLOPRAMIDE. [Concomitant]
     Active Substance: METOCLOPRAMIDE
  5. CANNABIS [Concomitant]
     Active Substance: CANNABIS SATIVA SUBSP. INDICA TOP
     Route: 048
  6. GRANISETRON [Concomitant]
     Active Substance: GRANISETRON
  7. DEXAMETHASONE. [Concomitant]
     Active Substance: DEXAMETHASONE
     Route: 048
  8. ONDANSETRON [Concomitant]
     Active Substance: ONDANSETRON
     Dosage: UP TO 3 TIMES A DAY, AS REQUIRED
     Route: 048
  9. NYSTATIN. [Concomitant]
     Active Substance: NYSTATIN
  10. BEVACIZUMAB. [Suspect]
     Active Substance: BEVACIZUMAB
     Indication: OVARIAN CANCER METASTATIC
     Route: 042
     Dates: start: 20200219, end: 20200219
  11. RANITIDINE. [Concomitant]
     Active Substance: RANITIDINE

REACTIONS (6)
  - Portal vein occlusion [Fatal]
  - Portal vein flow decreased [Fatal]
  - Portal vein thrombosis [Fatal]
  - Liver function test abnormal [Fatal]
  - Liver function test abnormal [Not Recovered/Not Resolved]
  - Hepatic vein thrombosis [Fatal]

NARRATIVE: CASE EVENT DATE: 20200228
